FAERS Safety Report 8474200-8 (Version None)
Quarter: 2012Q2

REPORT INFORMATION
  Report Type: 
  Country: None (occurrence: None)
  Receive Date: 20120628
  Receipt Date: 20120622
  Transmission Date: 20120825
  Serious: No
  Sender: FDA-Public Use
  Company Number: US-PFIZER INC-2012151503

PATIENT

DRUGS (1)
  1. FLUCONAZOLE [Suspect]
     Dosage: 150 MG, EVERYDAY FOR ONE WEEK

REACTIONS (2)
  - HYPOAESTHESIA [None]
  - PARAESTHESIA [None]
